FAERS Safety Report 17568368 (Version 5)
Quarter: 2020Q2

REPORT INFORMATION
  Report Type: Report from Study
  Country: TR (occurrence: TR)
  Receive Date: 20200320
  Receipt Date: 20200414
  Transmission Date: 20200713
  Serious: Yes (Hospitalization)
  Sender: FDA-Public Use
  Company Number: TR-EISAI MEDICAL RESEARCH-EC-2020-071915

PATIENT
  Age: 71 Year
  Sex: Female
  Weight: 50.1 kg

DRUGS (11)
  1. CITOLES [Concomitant]
     Active Substance: ESCITALOPRAM OXALATE
     Dates: start: 201811
  2. ATACAND [Concomitant]
     Active Substance: CANDESARTAN CILEXETIL
     Dates: start: 20190407, end: 20200311
  3. PEMBROLIZUMAB. [Suspect]
     Active Substance: PEMBROLIZUMAB
     Indication: ENDOMETRIAL CANCER
     Route: 041
     Dates: start: 20190111, end: 20200127
  4. PEMBROLIZUMAB. [Suspect]
     Active Substance: PEMBROLIZUMAB
     Route: 041
     Dates: start: 20200217, end: 20200217
  5. PEMBROLIZUMAB. [Suspect]
     Active Substance: PEMBROLIZUMAB
     Route: 041
     Dates: start: 20200330
  6. LENVATINIB [Suspect]
     Active Substance: LENVATINIB
     Indication: ENDOMETRIAL CANCER
     Dosage: STARTING DOSE 20 MG, FLUCTUATED DOSES
     Route: 048
     Dates: start: 20190111, end: 20200308
  7. LOPERMID [Concomitant]
     Dates: start: 20191216
  8. LEVOTIRON [Concomitant]
     Active Substance: LEVOTHYROXINE SODIUM
     Dates: start: 20200218
  9. MIRTAZAPINE. [Concomitant]
     Active Substance: MIRTAZAPINE
     Dates: start: 201811
  10. DILATREND [Concomitant]
     Active Substance: CARVEDILOL
     Dates: start: 20190416, end: 20200311
  11. LENVATINIB [Suspect]
     Active Substance: LENVATINIB
     Route: 048
     Dates: start: 20200309, end: 20200309

REACTIONS (1)
  - Hypotension [Recovered/Resolved]

NARRATIVE: CASE EVENT DATE: 20200313
